FAERS Safety Report 8522113-5 (Version None)
Quarter: 2012Q3

REPORT INFORMATION
  Report Type: 
  Country: None (occurrence: None)
  Receive Date: 20120719
  Receipt Date: 20120710
  Transmission Date: 20120928
  Serious: Yes (Hospitalization, Other)
  Sender: FDA-Public Use
  Company Number: US-ASTRAZENECA-2012SE28326

PATIENT
  Age: 58 Year
  Sex: Male

DRUGS (13)
  1. NEXIUM [Suspect]
     Route: 048
  2. LISINOPRIL [Concomitant]
  3. KEFLEX [Concomitant]
  4. CLONIDINE [Concomitant]
  5. SYMBICORT [Suspect]
     Dosage: 160/4.5 MCG, TWO PUFFS TWO TIMES A DAY
     Route: 055
  6. ALBUTEROL [Concomitant]
     Indication: WHEEZING
     Dosage: TWO PUFFS EVERY FOUR HOURS AS NEEDED
     Route: 055
  7. THEO-DUR [Concomitant]
  8. HYDRALAZINE HYDROCHLORIDE [Concomitant]
  9. PREDNISONE [Concomitant]
  10. XANAX [Concomitant]
  11. LORTAB [Concomitant]
     Indication: PAIN
     Dosage: 10/500 EVERY FOUR HOURS AS NEEDED
  12. SPIRIVA [Concomitant]
     Route: 055
  13. ICAR-C PLUS [Concomitant]

REACTIONS (36)
  - RENAL FAILURE ACUTE [None]
  - GASTROOESOPHAGEAL REFLUX DISEASE [None]
  - CARDIOVASCULAR DISORDER [None]
  - HEPATOMEGALY [None]
  - HEPATIC CIRRHOSIS [None]
  - PROTEIN URINE PRESENT [None]
  - DIVERTICULUM [None]
  - ANXIETY [None]
  - HAEMORRHOIDS [None]
  - MASS [None]
  - GASTROINTESTINAL HAEMORRHAGE [None]
  - STRESS [None]
  - OSTEOARTHRITIS [None]
  - RECTAL HAEMORRHAGE [None]
  - HYPERTENSION [None]
  - METABOLIC ACIDOSIS [None]
  - PNEUMONIA [None]
  - HAEMATOCRIT DECREASED [None]
  - ADVERSE EVENT [None]
  - PLEURITIC PAIN [None]
  - IRON DEFICIENCY [None]
  - HYPOMAGNESAEMIA [None]
  - ASTHMA [None]
  - HEADACHE [None]
  - SPLENOMEGALY [None]
  - VITAMIN B12 DECREASED [None]
  - HAEMATOCHEZIA [None]
  - ACUTE PRERENAL FAILURE [None]
  - SPINAL OSTEOARTHRITIS [None]
  - RENAL FAILURE [None]
  - HIATUS HERNIA [None]
  - MALNUTRITION [None]
  - DEHYDRATION [None]
  - CHRONIC OBSTRUCTIVE PULMONARY DISEASE [None]
  - OESOPHAGEAL MUCOSA ERYTHEMA [None]
  - INTERSTITIAL LUNG DISEASE [None]
